FAERS Safety Report 4662340-0 (Version None)
Quarter: 2005Q2

REPORT INFORMATION
  Report Type: 
  Country: None (occurrence: None)
  Receive Date: 20050513
  Receipt Date: 20050513
  Transmission Date: 20051028
  Serious: No
  Sender: FDA-Public Use
  Company Number: None

PATIENT
  Age: 78 Year
  Sex: Male

DRUGS (4)
  1. NAFCILLIN [Suspect]
     Indication: ABSCESS
     Dosage: 3 GMS/4 HOUR    IVPB
     Route: 042
     Dates: start: 20050422, end: 20050426
  2. DIALYSIS [Concomitant]
  3. VANCOMYCIN [Concomitant]
  4. CLINDAMYCIN [Concomitant]

REACTIONS (2)
  - DIALYSIS [None]
  - NEPHRITIS INTERSTITIAL [None]
